FAERS Safety Report 23847706 (Version 1)
Quarter: 2024Q2

REPORT INFORMATION
  Report Type: Spontaneous
  Country: US (occurrence: US)
  Receive Date: 20240513
  Receipt Date: 20240513
  Transmission Date: 20240716
  Serious: Yes (Other)
  Sender: FDA-Public Use
  Company Number: US-CIPLA LTD.-2024US04403

PATIENT

DRUGS (2)
  1. GABAPENTIN [Suspect]
     Active Substance: GABAPENTIN
     Indication: Neuralgia
     Dosage: 300 MILLIGRAM, QD (ONCE AT NIGHT)
     Route: 048
     Dates: start: 20240424
  2. GABAPENTIN [Suspect]
     Active Substance: GABAPENTIN
     Dosage: 300 MILLIGRAM, QD (ONCE AT NIGHT)
     Route: 048
     Dates: start: 20240425, end: 20240425

REACTIONS (4)
  - Hallucination [Recovered/Resolved]
  - Somnolence [Not Recovered/Not Resolved]
  - Tremor [Unknown]
  - Fatigue [Unknown]

NARRATIVE: CASE EVENT DATE: 20240425
